FAERS Safety Report 25943521 (Version 1)
Quarter: 2025Q4

REPORT INFORMATION
  Report Type: Spontaneous
  Country: AR (occurrence: AR)
  Receive Date: 20251021
  Receipt Date: 20251021
  Transmission Date: 20260117
  Serious: Yes (Life-Threatening, Hospitalization, Other)
  Sender: CELLTRION
  Company Number: AR-CELLTRION INC.-2025AR037855

PATIENT

DRUGS (4)
  1. RITUXIMAB [Suspect]
     Active Substance: RITUXIMAB
     Indication: Retroperitoneal fibrosis
  2. AZATHIOPRINE [Concomitant]
     Active Substance: AZATHIOPRINE
     Dosage: 150 MG/DAY
  3. PREDNISONE [Concomitant]
     Active Substance: PREDNISONE
     Dosage: 40 MG/DAY
  4. PREDNISONE [Concomitant]
     Active Substance: PREDNISONE
     Dosage: 2.5 MG/DAY

REACTIONS (2)
  - Acute kidney injury [Recovering/Resolving]
  - Drug effective for unapproved indication [Unknown]
